FAERS Safety Report 10870041 (Version 4)
Quarter: 2015Q3

REPORT INFORMATION
  Report Type: Spontaneous
  Country: US (occurrence: None)
  Receive Date: 20150223
  Receipt Date: 20150918
  Transmission Date: 20151125
  Serious: Yes (Life-Threatening, Hospitalization, Other)
  Sender: FDA-Public Use
  Company Number: ADR-2015-00373

PATIENT
  Age: 14 Year
  Sex: Male

DRUGS (2)
  1. DIAZEPAM 5MG/5ML ORAL SOLUTION [Suspect]
     Active Substance: DIAZEPAM
     Indication: ANXIETY
     Dosage: 7.5 MG AS NEEDED
  2. COMPOUNDED BACLOFEN INTRATHECAL 2000MCG/ML [Suspect]
     Active Substance: BACLOFEN
     Indication: MUSCLE SPASTICITY
     Dosage: 883.17 MCG/DAY

REACTIONS (19)
  - Irritability [None]
  - Cyanosis [None]
  - Insomnia [None]
  - Device damage [None]
  - Muscle tightness [None]
  - Electroencephalogram abnormal [None]
  - Seizure [None]
  - Hypotension [None]
  - Loss of consciousness [None]
  - Incorrect route of drug administration [None]
  - Drug administration error [None]
  - Coma [None]
  - Overdose [None]
  - Cardiac arrest [None]
  - Respiratory arrest [None]
  - Unresponsive to stimuli [None]
  - Device power source issue [None]
  - Device material issue [None]
  - Mydriasis [None]
